FAERS Safety Report 6389381-X (Version None)
Quarter: 2009Q4

REPORT INFORMATION
  Report Type: 
  Country: None (occurrence: None)
  Receive Date: 20091006
  Receipt Date: 20090924
  Transmission Date: 20100525
  Serious: Yes (Hospitalization, Other)
  Sender: FDA-Public Use
  Company Number: US-ELI_LILLY_AND_COMPANY-US200909005948

PATIENT
  Sex: Male

DRUGS (6)
  1. FORTEO [Suspect]
     Indication: OSTEOPOROSIS
     Dosage: 20 UG, DAILY (1/D)
     Dates: start: 20080901
  2. PLAVIX [Concomitant]
  3. ASPIRIN [Concomitant]
  4. ATACAND [Concomitant]
  5. LIPITOR [Concomitant]
  6. ATENOLOL [Concomitant]

REACTIONS (5)
  - CARDIAC OPERATION [None]
  - CARDIAC PACEMAKER INSERTION [None]
  - INJECTION SITE HAEMATOMA [None]
  - INJECTION SITE NODULE [None]
  - PARANOIA [None]
